FAERS Safety Report 4679947-7 (Version None)
Quarter: 2005Q2

REPORT INFORMATION
  Report Type: 
  Country: None (occurrence: None)
  Receive Date: 20050531
  Receipt Date: 20050520
  Transmission Date: 20051028
  Serious: No
  Sender: FDA-Public Use
  Company Number: D0046639A

PATIENT
  Age: 33 Year
  Sex: Male

DRUGS (9)
  1. LEXIVA [Suspect]
     Indication: HIV INFECTION
     Dosage: 700 MG / TWICE PER DAY / ORAL
     Route: 048
     Dates: start: 20041124, end: 20050323
  2. COMBIVIR [Concomitant]
  3. EFAVIRENZ [Concomitant]
  4. RITONAVIR [Concomitant]
  5. LAMIVUDINE [Concomitant]
  6. ABACAVIR SULPHATE [Concomitant]
  7. METHADONE HYDROCHLORIDE [Concomitant]
  8. TRIMIPRAMINE MALEATE [Concomitant]
  9. DIAZEPAM [Concomitant]

REACTIONS (6)
  - DIARRHOEA [None]
  - DIZZINESS [None]
  - FATIGUE [None]
  - GAMMA-GLUTAMYLTRANSFERASE INCREASED [None]
  - GASTROINTESTINAL PAIN [None]
  - NAUSEA [None]
